FAERS Safety Report 13090378 (Version 1)
Quarter: 2017Q1

REPORT INFORMATION
  Report Type: Spontaneous
  Country: US (occurrence: US)
  Receive Date: 20170105
  Receipt Date: 20170105
  Transmission Date: 20170428
  Serious: No
  Sender: FDA-Public Use
  Company Number: US-ENDO PHARMACEUTICALS INC.-2016-002728

PATIENT
  Age: 73 Year
  Sex: Male
  Weight: 75.82 kg

DRUGS (14)
  1. METOPROLOL TARTRATE. [Concomitant]
     Active Substance: METOPROLOL TARTRATE
     Indication: HYPERTENSION
  2. NEURONTIN [Concomitant]
     Active Substance: GABAPENTIN
     Indication: NEURALGIA
  3. FORTESTA [Suspect]
     Active Substance: TESTOSTERONE
     Indication: BLOOD TESTOSTERONE DECREASED
     Route: 061
     Dates: start: 201602
  4. FISH OIL OMEGA 3 [Concomitant]
     Indication: BONE DISORDER
  5. FLOMAX ER [Concomitant]
     Indication: BLADDER DISORDER
  6. VITAMIN D3 [Concomitant]
     Active Substance: CHOLECALCIFEROL
     Indication: VITAMIN D DECREASED
  7. OXYCODONE 10/325 [Concomitant]
     Indication: BACK PAIN
  8. MULTIVITAMINS .5MG CHEWABLE TABLETS [Concomitant]
     Indication: VITAMIN SUPPLEMENTATION
  9. LIPITOR [Concomitant]
     Active Substance: ATORVASTATIN CALCIUM
     Indication: BLOOD CHOLESTEROL INCREASED
  10. ASPIRIN EC LOW DOSE 81 MG [Concomitant]
     Active Substance: ASPIRIN
     Indication: CARDIOVASCULAR EVENT PROPHYLAXIS
  11. FISH OIL OMEGA 3 [Concomitant]
     Indication: DRY SKIN
  12. PRILOSEC [Concomitant]
     Active Substance: OMEPRAZOLE MAGNESIUM
     Indication: ULCER HAEMORRHAGE
  13. AMITRIPTYLINE HCL 50MG [Concomitant]
     Active Substance: AMITRIPTYLINE
     Indication: ANXIETY
  14. ENALAPRIL HCTZ [Concomitant]
     Active Substance: ENALAPRIL MALEATE\HYDROCHLOROTHIAZIDE
     Indication: HYPERTENSION

REACTIONS (3)
  - Application site rash [Not Recovered/Not Resolved]
  - Application site pain [Not Recovered/Not Resolved]
  - Inappropriate schedule of drug administration [Unknown]

NARRATIVE: CASE EVENT DATE: 201602
